FAERS Safety Report 21833490 (Version 4)
Quarter: 2023Q1

REPORT INFORMATION
  Report Type: Report from Study
  Country: ES (occurrence: ES)
  Receive Date: 20230107
  Receipt Date: 20230330
  Transmission Date: 20230417
  Serious: Yes (Life-Threatening, Hospitalization, Other)
  Sender: FDA-Public Use
  Company Number: ES-CELLTRION INC.-2022ES022130

PATIENT

DRUGS (81)
  1. RITUXIMAB [Suspect]
     Active Substance: RITUXIMAB
     Indication: Diffuse large B-cell lymphoma stage IV
     Dosage: REGIMEN 1, 375 MG/M2, EVERY 3 WEEKS
     Route: 042
     Dates: start: 20210916
  2. RITUXIMAB [Suspect]
     Active Substance: RITUXIMAB
     Dosage: 375 MG/M3
     Route: 042
     Dates: start: 20210916
  3. CYCLOPHOSPHAMIDE [Suspect]
     Active Substance: CYCLOPHOSPHAMIDE
     Indication: Diffuse large B-cell lymphoma stage IV
     Dosage: 750 MG/M2, EVERY 3 WEEKS
     Route: 042
     Dates: start: 20210916
  4. CYCLOPHOSPHAMIDE [Suspect]
     Active Substance: CYCLOPHOSPHAMIDE
     Dosage: 750 MILLIGRAM PER CUBIC METRE
     Route: 042
     Dates: start: 20210916
  5. DOXORUBICIN HYDROCHLORIDE [Suspect]
     Active Substance: DOXORUBICIN HYDROCHLORIDE
     Indication: Diffuse large B-cell lymphoma stage IV
     Dosage: 50 MG/M2, EVERY 3 WEEKS [REGIMEN 1]
     Route: 042
     Dates: start: 20210916
  6. DOXORUBICIN HYDROCHLORIDE [Suspect]
     Active Substance: DOXORUBICIN HYDROCHLORIDE
     Dosage: 50 MG, EVERY 3 WEEKS, SOLUTION FOR INFUSION, REGIMEN 1, 50 MILLIGRAM/SQ. METER,1Q3W
     Route: 042
     Dates: start: 20210916
  7. DOXORUBICIN HYDROCHLORIDE [Suspect]
     Active Substance: DOXORUBICIN HYDROCHLORIDE
     Dosage: 50 MG/M3
     Route: 042
     Dates: start: 20210916
  8. DOXORUBICIN HYDROCHLORIDE [Suspect]
     Active Substance: DOXORUBICIN HYDROCHLORIDE
     Dosage: 50 MG/M3
     Dates: start: 20211210
  9. VINCRISTINE SULFATE [Suspect]
     Active Substance: VINCRISTINE SULFATE
     Indication: Diffuse large B-cell lymphoma stage IV
     Dosage: REGIMEN 1, 1.4 MG/M2, EVERY 3 WEEKS
     Route: 042
     Dates: start: 20210916
  10. VINCRISTINE SULFATE [Suspect]
     Active Substance: VINCRISTINE SULFATE
     Dosage: 1.4 MG, EVERY 3 WEEKS
     Route: 042
     Dates: start: 20210916
  11. VINCRISTINE SULFATE [Suspect]
     Active Substance: VINCRISTINE SULFATE
     Dosage: 1.4 MG/M3
     Route: 042
     Dates: start: 20210916
  12. PREDNISONE [Suspect]
     Active Substance: PREDNISONE
     Indication: Diffuse large B-cell lymphoma stage IV
     Dosage: 100 MG
     Route: 048
     Dates: start: 20211106
  13. PREDNISONE [Suspect]
     Active Substance: PREDNISONE
     Dosage: 100 MILLIGRAM, 1X/DAY (DAY 1 TO 5 FOR EACH 21-DAY CYCLE (CYCLE 1-6)
     Route: 048
     Dates: start: 20211008, end: 20211012
  14. PREDNISONE [Suspect]
     Active Substance: PREDNISONE
     Dosage: 100 MG
     Route: 048
     Dates: start: 20211211, end: 20211214
  15. PREDNISONE [Suspect]
     Active Substance: PREDNISONE
     Dosage: 80 MILLIGRAM
     Route: 048
     Dates: start: 20211102, end: 20211102
  16. PREDNISONE [Suspect]
     Active Substance: PREDNISONE
     Dosage: 100 MILLIGRAM, QD
     Route: 048
     Dates: start: 20211030, end: 20211102
  17. PREDNISONE [Suspect]
     Active Substance: PREDNISONE
     Dosage: 100 MG, 1X/DAY (DAY 1 TO 5 FOR EACH 21-DAY CYCLE (CYCLE 1-6))
     Route: 048
     Dates: start: 20210916, end: 20210921
  18. PREDNISONE [Suspect]
     Active Substance: PREDNISONE
     Dosage: REGIMEN 1, 100 MILLIGRAM, QD (DAY 1 TO 5 FOR EACH 21-DAY CYCLE(CYCLE 1-6)
     Route: 048
     Dates: start: 20210917, end: 20210921
  19. PREDNISONE [Suspect]
     Active Substance: PREDNISONE
     Dosage: 100 MG QD, DAY 1-5 FOR EACH 21 DAY CYCLE
     Route: 048
     Dates: start: 20220917, end: 20220921
  20. PREDNISONE [Suspect]
     Active Substance: PREDNISONE
     Dosage: 100 MG
     Route: 048
     Dates: start: 20211106, end: 20211214
  21. PREDNISONE [Suspect]
     Active Substance: PREDNISONE
     Dosage: REGIMEN 1, 100 MILLIGRAM, QD (DAY 1 TO 5 FOR EACH 21-DAY CYCLE(CYCLE 1-6)
     Route: 048
     Dates: start: 20210917, end: 20210921
  22. PREDNISONE [Suspect]
     Active Substance: PREDNISONE
     Dosage: REGIMEN 2, 100 MILLIGRAM, QD (DAY 1 TO 5 FOR EACH 21-DAY CYCLE(CYCLE 1-6)
     Route: 048
     Dates: start: 20211008, end: 20211012
  23. PREDNISONE [Suspect]
     Active Substance: PREDNISONE
     Dosage: REGIMEN 3, 100 MILLIGRAM, QD (DAY 1 TO 5 FOR EACH 21-DAY CYCLE(CYCLE 1-6)
     Route: 048
     Dates: start: 20211030, end: 20211102
  24. PREDNISONE [Suspect]
     Active Substance: PREDNISONE
     Dosage: DAY 1 TO 5 FOR EACH 21-DAY CYCLE ( CYCLE 1-6)
     Route: 048
     Dates: start: 20210917, end: 20210921
  25. PREDNISONE [Suspect]
     Active Substance: PREDNISONE
     Dosage: DAY 1 TO 5 FOR EACH 21-DAY CYCLE ( CYCLE 1-6)
     Route: 048
     Dates: start: 20211008, end: 20211012
  26. PREDNISONE [Suspect]
     Active Substance: PREDNISONE
     Dosage: DAY 1 TO 5 FOR EACH 21-DAY CYCLE ( CYCLE 1-6)
     Route: 048
     Dates: start: 20211008, end: 20211012
  27. PREDNISONE [Suspect]
     Active Substance: PREDNISONE
     Dosage: DAY 1 TO 5 FOR EACH 21-DAY CYCLE ( CYCLE 1-6)
     Route: 048
     Dates: start: 20211030, end: 20211102
  28. METHYLPREDNISOLONE SODIUM SUCCINATE [Suspect]
     Active Substance: METHYLPREDNISOLONE SODIUM SUCCINATE
     Indication: Diffuse large B-cell lymphoma stage IV
     Dosage: REGIMEN 2 80 MG, SINGLE
     Route: 042
     Dates: start: 20211210, end: 20211210
  29. METHYLPREDNISOLONE SODIUM SUCCINATE [Suspect]
     Active Substance: METHYLPREDNISOLONE SODIUM SUCCINATE
     Dosage: 100 MG, SINGLE
     Route: 042
     Dates: start: 20210930, end: 20210930
  30. METHYLPREDNISOLONE SODIUM SUCCINATE [Suspect]
     Active Substance: METHYLPREDNISOLONE SODIUM SUCCINATE
     Dosage: 80 MG, SINGLE
     Route: 042
     Dates: start: 20210916, end: 20210916
  31. METHYLPREDNISOLONE SODIUM SUCCINATE [Suspect]
     Active Substance: METHYLPREDNISOLONE SODIUM SUCCINATE
     Dosage: 80 MG, SINGLE
     Route: 042
     Dates: start: 20211126, end: 20211126
  32. METHYLPREDNISOLONE SODIUM SUCCINATE [Suspect]
     Active Substance: METHYLPREDNISOLONE SODIUM SUCCINATE
     Dosage: REGIMEN 2, 80 MG, SINGLE
     Route: 042
     Dates: start: 20211119, end: 20211119
  33. METHYLPREDNISOLONE SODIUM SUCCINATE [Suspect]
     Active Substance: METHYLPREDNISOLONE SODIUM SUCCINATE
     Dosage: 80 MG, SINGLE
     Route: 042
     Dates: start: 20211210, end: 20211213
  34. EPCORITAMAB [Suspect]
     Active Substance: EPCORITAMAB
     Indication: Diffuse large B-cell lymphoma stage IV
     Dosage: 0.8 MG (INTERMEDIATE DOSE)
     Route: 058
     Dates: start: 20210923, end: 20210923
  35. EPCORITAMAB [Suspect]
     Active Substance: EPCORITAMAB
     Dosage: 48 MG, WEEKLY (FULL DOSE)
     Route: 058
     Dates: start: 20210930, end: 20211126
  36. EPCORITAMAB [Suspect]
     Active Substance: EPCORITAMAB
     Dosage: 48 MG EVERY 3 WEEKS (FULL DOSE) (CYCLE 5 (C5D1))
     Route: 058
     Dates: start: 20211210
  37. EPCORITAMAB [Suspect]
     Active Substance: EPCORITAMAB
     Dosage: 0.16 MG (PRIMING DOSE), SINGLE DOSE
     Route: 058
     Dates: start: 20210916, end: 20210916
  38. EPCORITAMAB [Suspect]
     Active Substance: EPCORITAMAB
     Dosage: 48 MG/M3 (FULL DOSE)
     Route: 042
     Dates: start: 20211210
  39. DOXORUBICIN [Suspect]
     Active Substance: DOXORUBICIN
     Indication: Diffuse large B-cell lymphoma stage IV
     Dosage: SOLUTION FOR INFUSION, REGIMEN 1, 50 MILLIGRAM/SQ. METER,1Q3W
     Route: 042
     Dates: start: 20210916
  40. METHYLPREDNISOLONE SODIUM SUCCINATE [Suspect]
     Active Substance: METHYLPREDNISOLONE SODIUM SUCCINATE
     Indication: Diffuse large B-cell lymphoma stage IV
     Dosage: REGIMEN 2, 80 MILLIGRAM, SINGLE
     Route: 042
     Dates: start: 20211210, end: 20211210
  41. METHYLPREDNISOLONE SODIUM SUCCINATE [Suspect]
     Active Substance: METHYLPREDNISOLONE SODIUM SUCCINATE
     Dosage: REGIMEN 1, 80 MILLIGRAM, SINGLE
     Route: 042
     Dates: start: 20211119, end: 20211119
  42. GRANULOCYTE COLONY-STIMULATING FACTOR NOS [Concomitant]
     Active Substance: GRANULOCYTE COLONY-STIMULATING FACTOR NOS
     Indication: Neutropenia
     Dosage: 300 MICROGRAM, QD
     Route: 058
     Dates: start: 20211210, end: 20211213
  43. GRANULOCYTE COLONY-STIMULATING FACTOR NOS [Concomitant]
     Active Substance: GRANULOCYTE COLONY-STIMULATING FACTOR NOS
     Dosage: UNK
     Dates: start: 20211210, end: 20211213
  44. GRANULOCYTE COLONY-STIMULATING FACTOR NOS [Concomitant]
     Active Substance: GRANULOCYTE COLONY-STIMULATING FACTOR NOS
     Dosage: UNK
  45. SULFAMETHOXAZOLE\TRIMETHOPRIM [Concomitant]
     Active Substance: SULFAMETHOXAZOLE\TRIMETHOPRIM
     Indication: Prophylaxis
     Dosage: 2 DOSAGE FORM (TABLETS), 2 TIMES PER WEEK(BIW)
     Route: 048
     Dates: start: 20210830, end: 20220930
  46. SULFAMETHOXAZOLE\TRIMETHOPRIM [Concomitant]
     Active Substance: SULFAMETHOXAZOLE\TRIMETHOPRIM
     Dosage: UNK
     Dates: start: 20210830
  47. OMEPRAZOLE [Concomitant]
     Active Substance: OMEPRAZOLE
     Indication: Prophylaxis
     Dosage: 20 MG, QD
     Route: 048
     Dates: start: 20210822
  48. OMEPRAZOLE [Concomitant]
     Active Substance: OMEPRAZOLE
     Dosage: UNK
     Dates: start: 20210822
  49. AMITRIPTYLINE [Concomitant]
     Active Substance: AMITRIPTYLINE
     Dosage: UNK
     Dates: start: 2021
  50. AMITRIPTILINA ARENA [Concomitant]
     Indication: Product used for unknown indication
     Dosage: UNK
     Dates: start: 2021
  51. ALLOPURINOL [Concomitant]
     Active Substance: ALLOPURINOL
     Indication: Prophylaxis
     Dosage: 100 MG, QD
     Route: 048
     Dates: start: 20211108, end: 20220930
  52. ALLOPURINOL [Concomitant]
     Active Substance: ALLOPURINOL
     Dosage: UNK
     Dates: start: 20211108
  53. FENTANYL [Concomitant]
     Active Substance: FENTANYL
     Indication: Prophylaxis
     Dosage: UNK
     Dates: start: 20210820, end: 20220311
  54. FENTANYL [Concomitant]
     Active Substance: FENTANYL
     Dosage: 25 MICROGRAM, PRN
     Dates: start: 20210820, end: 20211213
  55. FENTANYL [Concomitant]
     Active Substance: FENTANYL
     Dosage: UNK
     Dates: start: 20210820, end: 20211213
  56. ACETAMINOPHEN [Concomitant]
     Active Substance: ACETAMINOPHEN
     Indication: Premedication
     Dosage: 1 G
     Route: 042
     Dates: start: 20211210, end: 20211210
  57. ACETAMINOPHEN [Concomitant]
     Active Substance: ACETAMINOPHEN
     Dosage: UNK
     Dates: start: 20211210, end: 20211210
  58. MAGNESIUM [Concomitant]
     Active Substance: MAGNESIUM
     Indication: Product used for unknown indication
     Dosage: UNK
     Dates: start: 20210929
  59. BEMIPARIN [Concomitant]
     Active Substance: BEMIPARIN
     Indication: Prophylaxis
     Dosage: 3500 INTERNATIONAL UNIT, QD
     Route: 058
     Dates: start: 20210821, end: 20221125
  60. BEMIPARIN [Concomitant]
     Active Substance: BEMIPARIN
     Dosage: UNK
     Dates: start: 20210821
  61. CALCIUM CARBONATE [Concomitant]
     Active Substance: CALCIUM CARBONATE
     Indication: Prophylaxis
     Dosage: 500 MG, QD
     Route: 048
     Dates: start: 20211115
  62. CALCIUM CARBONATE [Concomitant]
     Active Substance: CALCIUM CARBONATE
     Dosage: UNK
     Dates: start: 20211115
  63. DEXCHLORPHENIRAMINE [Concomitant]
     Active Substance: DEXCHLORPHENIRAMINE
     Indication: Premedication
     Dosage: 5 MG, SINGLE
     Route: 042
     Dates: start: 20211210, end: 20211210
  64. DEXCHLORPHENIRAMINE [Concomitant]
     Active Substance: DEXCHLORPHENIRAMINE
     Dosage: UNK
     Dates: start: 20211210
  65. PREGABALIN [Concomitant]
     Active Substance: PREGABALIN
     Indication: Product used for unknown indication
     Dosage: 75 MG, QD
     Route: 048
     Dates: start: 20210823
  66. PREGABALIN [Concomitant]
     Active Substance: PREGABALIN
     Dosage: 75 MG, BID
     Route: 048
     Dates: start: 20211108
  67. PREGABALIN [Concomitant]
     Active Substance: PREGABALIN
     Dosage: UNK
     Dates: start: 20210823
  68. PREDNISONE [Concomitant]
     Active Substance: PREDNISONE
     Indication: Prophylaxis
     Dosage: UNK
     Dates: start: 20211106, end: 20211214
  69. PREDNISONE [Concomitant]
     Active Substance: PREDNISONE
     Dosage: 80 MG
     Dates: start: 20211102
  70. PREDNISONE [Concomitant]
     Active Substance: PREDNISONE
     Dosage: 100 MG
     Route: 048
     Dates: start: 20211211, end: 20211214
  71. PREDNISONE [Concomitant]
     Active Substance: PREDNISONE
     Dosage: 80 MG, QD
     Route: 048
     Dates: start: 20211106, end: 20211108
  72. PREDNISONE [Concomitant]
     Active Substance: PREDNISONE
     Dosage: UNK
     Dates: start: 20211106, end: 20211214
  73. METHYLPREDNISOLONE [Concomitant]
     Active Substance: METHYLPREDNISOLONE
     Indication: Prophylaxis
     Dosage: UNK
     Route: 042
     Dates: start: 20210916, end: 20211126
  74. METHYLPREDNISOLONE [Concomitant]
     Active Substance: METHYLPREDNISOLONE
     Dosage: 80 MG
     Route: 042
     Dates: start: 20210916
  75. METHYLPREDNISOLONE [Concomitant]
     Active Substance: METHYLPREDNISOLONE
     Dosage: 100 MG
     Route: 042
     Dates: start: 20210930
  76. METHYLPREDNISOLONE [Concomitant]
     Active Substance: METHYLPREDNISOLONE
     Dosage: 80 MG
     Route: 042
     Dates: start: 20211126
  77. METHYLPREDNISOLONE [Concomitant]
     Active Substance: METHYLPREDNISOLONE
     Dosage: 80 MG
     Route: 065
     Dates: start: 20211210, end: 20211213
  78. AMITRIPTYLINE HYDROCHLORIDE [Concomitant]
     Active Substance: AMITRIPTYLINE HYDROCHLORIDE
     Indication: Product used for unknown indication
     Dosage: 25 MG, QD
     Route: 048
     Dates: start: 2021
  79. ACYCLOVIR [Concomitant]
     Active Substance: ACYCLOVIR
     Indication: Upper respiratory tract infection
     Dosage: 800 MG, BID
     Route: 048
     Dates: start: 20211018, end: 20221125
  80. ACYCLOVIR [Concomitant]
     Active Substance: ACYCLOVIR
     Dosage: UNK
  81. AMITRIPTYLINE HYDROCHLORIDE [Concomitant]
     Active Substance: AMITRIPTYLINE HYDROCHLORIDE
     Dosage: UNK
     Dates: start: 2021

REACTIONS (11)
  - Febrile neutropenia [Recovered/Resolved]
  - Immune effector cell-associated neurotoxicity syndrome [Recovered/Resolved]
  - Immune effector cell-associated neurotoxicity syndrome [Unknown]
  - Somnolence [Unknown]
  - Spinal fracture [Recovered/Resolved]
  - Paraesthesia [Unknown]
  - Thrombocytopenia [Unknown]
  - Diarrhoea [Unknown]
  - Gastroenteritis [Unknown]
  - C-reactive protein increased [Unknown]
  - Haemoglobin decreased [Unknown]

NARRATIVE: CASE EVENT DATE: 20211001
